FAERS Safety Report 24721597 (Version 1)
Quarter: 2024Q4

REPORT INFORMATION
  Report Type: Spontaneous
  Country: US (occurrence: None)
  Receive Date: 20241211
  Receipt Date: 20241211
  Transmission Date: 20250114
  Serious: Yes (Hospitalization)
  Sender: Public
  Company Number: None

PATIENT
  Age: 64 Year
  Sex: Male
  Weight: 100 kg

DRUGS (5)
  1. CARBOPLATIN [Suspect]
     Active Substance: CARBOPLATIN
  2. TAXOL [Suspect]
     Active Substance: PACLITAXEL
  3. IBUPROFEN [Concomitant]
     Active Substance: IBUPROFEN
  4. NAPROXEN [Concomitant]
     Active Substance: NAPROXEN
  5. XARELTO [Concomitant]
     Active Substance: RIVAROXABAN

REACTIONS (5)
  - Gastric haemorrhage [None]
  - Haemoglobin decreased [None]
  - Tachycardia [None]
  - Hypotension [None]
  - Small intestinal obstruction [None]

NARRATIVE: CASE EVENT DATE: 20241111
